FAERS Safety Report 25034604 (Version 2)
Quarter: 2025Q1

REPORT INFORMATION
  Report Type: Spontaneous
  Country: FR (occurrence: FR)
  Receive Date: 20250304
  Receipt Date: 20250327
  Transmission Date: 20250408
  Serious: Yes (Life-Threatening)
  Sender: RECORDATI
  Company Number: None

PATIENT
  Age: 4 Year
  Sex: Male
  Weight: 16.8 kg

DRUGS (4)
  1. COSMEGEN [Suspect]
     Active Substance: DACTINOMYCIN
     Indication: Nephroblastoma
     Route: 042
     Dates: start: 20241202, end: 20250122
  2. VINCRISTINE [Suspect]
     Active Substance: VINCRISTINE
     Indication: Nephroblastoma
     Route: 042
     Dates: start: 20241202, end: 20250129
  3. ONDANSETRON [Concomitant]
     Active Substance: ONDANSETRON
     Indication: Product used for unknown indication
  4. Loxen [Concomitant]
     Indication: Product used for unknown indication

REACTIONS (2)
  - Hepatitis fulminant [Recovered/Resolved]
  - Venoocclusive disease [Recovered/Resolved]

NARRATIVE: CASE EVENT DATE: 20250130
